FAERS Safety Report 26167576 (Version 1)
Quarter: 2025Q4

REPORT INFORMATION
  Report Type: Spontaneous
  Country: US (occurrence: US)
  Receive Date: 20251217
  Receipt Date: 20251217
  Transmission Date: 20260117
  Serious: No
  Sender: MANKIND PHARMA
  Company Number: US-MankindUS-000368

PATIENT

DRUGS (1)
  1. OMEGA-3-ACID ETHYL ESTERS [Suspect]
     Active Substance: OMEGA-3-ACID ETHYL ESTERS
     Indication: Product used for unknown indication

REACTIONS (3)
  - Product odour abnormal [Unknown]
  - Nausea [Unknown]
  - Poor quality product administered [Unknown]
